FAERS Safety Report 5648602-9 (Version None)
Quarter: 2008Q1

REPORT INFORMATION
  Report Type: 
  Country: None (occurrence: None)
  Receive Date: 20080304
  Receipt Date: 20080221
  Transmission Date: 20080703
  Serious: Yes (Hospitalization)
  Sender: FDA-Public Use
  Company Number: FR-AMGEN-US254283

PATIENT
  Sex: Female

DRUGS (6)
  1. ENBREL [Suspect]
     Indication: PSORIATIC ARTHROPATHY
     Dosage: PREFILLED SYRINGE/25 MG 2 TIMES PER WEEK
     Route: 058
     Dates: start: 20020601
  2. ENBREL [Suspect]
     Dosage: LYOPHILIZED/25 MG 2 TIMES PER WEEK
     Route: 058
     Dates: start: 20020601, end: 20070101
  3. VOLTAREN [Concomitant]
     Dosage: 75 MG TOTAL DAILY
     Route: 065
  4. DILTIAZEM [Concomitant]
     Route: 065
  5. INDAPAMIDE [Concomitant]
     Route: 065
  6. UNSPECIFIED ANTIHYPERTENSIVE AGENT [Concomitant]
     Route: 065

REACTIONS (4)
  - ASTHENIA [None]
  - ECCHYMOSIS [None]
  - FALL [None]
  - SYNCOPE [None]
